FAERS Safety Report 24205490 (Version 3)
Quarter: 2024Q3

REPORT INFORMATION
  Report Type: Spontaneous
  Country: US (occurrence: US)
  Receive Date: 20240813
  Receipt Date: 20240819
  Transmission Date: 20241016
  Serious: No
  Sender: PFIZER
  Company Number: US-PFIZER INC-202400233194

PATIENT
  Age: 51 Year
  Sex: Female
  Weight: 74.84 kg

DRUGS (7)
  1. TRIAZOLAM [Suspect]
     Active Substance: TRIAZOLAM
     Indication: Sleep disorder
     Dosage: 2 DF, DAILY EVERY NIGHT
  2. HYDROCHLOROTHIAZIDE [Concomitant]
     Active Substance: HYDROCHLOROTHIAZIDE
     Indication: Blood pressure abnormal
     Dosage: 12.5 MG, DAILY EVERYDAY
  3. LISINOPRIL [Concomitant]
     Active Substance: LISINOPRIL
     Indication: Hypertension
     Dosage: 2.5 MG, DAILY (2.5MG 1 TABLET A DAY)
  4. HYDROCODONE [Concomitant]
     Active Substance: HYDROCODONE
     Indication: Blood pressure abnormal
     Dosage: 10 MG, AS NEEDED
  5. HYDROCODONE [Concomitant]
     Active Substance: HYDROCODONE
     Indication: Pain
  6. ROSUVASTATIN [Concomitant]
     Active Substance: ROSUVASTATIN\ROSUVASTATIN CALCIUM
     Indication: Blood pressure abnormal
     Dosage: 20MG 1 TABLET
  7. ROSUVASTATIN [Concomitant]
     Active Substance: ROSUVASTATIN\ROSUVASTATIN CALCIUM
     Indication: Blood cholesterol abnormal

REACTIONS (1)
  - Drug screen positive [Unknown]
